FAERS Safety Report 9876892 (Version 2)
Quarter: 2014Q1

REPORT INFORMATION
  Report Type: Spontaneous
  Country: IT (occurrence: None)
  Receive Date: 20140204
  Receipt Date: 20140214
  Transmission Date: 20141002
  Serious: Yes (Hospitalization)
  Sender: FDA-Public Use
  Company Number: B0964650A

PATIENT
  Age: 48 Year
  Sex: Female
  Weight: 79.83 kg

DRUGS (5)
  1. PAROXETINE HYDROCHLORIDE [Suspect]
     Indication: PRODUCT USED FOR UNKNOWN INDICATION
     Dosage: UNK/ PER DAY/ ORAL
     Route: 048
     Dates: start: 20130301, end: 20131103
  2. IRBESARTAN [Suspect]
     Indication: HYPERTENSION
     Dosage: UNK/ PER DAY/ ORAL
     Route: 048
     Dates: start: 20121126, end: 20140120
  3. ESOMEPRAZOLE [Concomitant]
  4. METHOTREXATE [Concomitant]
  5. FOLIC ACID [Concomitant]

REACTIONS (3)
  - Pancreatitis acute [None]
  - Hypertension [None]
  - Pancreatitis relapsing [None]
